FAERS Safety Report 5141011-0 (Version None)
Quarter: 2006Q4

REPORT INFORMATION
  Report Type: 
  Country: None (occurrence: None)
  Receive Date: 20061026
  Receipt Date: 20061018
  Transmission Date: 20070319
  Serious: Yes (Death)
  Sender: FDA-Public Use
  Company Number: HQWYE384120OCT06

PATIENT
  Age: 72 Year
  Sex: Female

DRUGS (1)
  1. MYLOTARG [Suspect]
     Indication: ACUTE MYELOID LEUKAEMIA
     Dosage: 9 MG/M^2 1X PER 1 DAY
     Route: 041
     Dates: start: 20060619, end: 20060619

REACTIONS (3)
  - BRADYCARDIA [None]
  - PYREXIA [None]
  - RESPIRATORY ARREST [None]
